FAERS Safety Report 23119363 (Version 1)
Quarter: 2023Q4

REPORT INFORMATION
  Report Type: Spontaneous
  Country: JP (occurrence: JP)
  Receive Date: 20231028
  Receipt Date: 20231028
  Transmission Date: 20240110
  Serious: Yes (Other)
  Sender: FDA-Public Use
  Company Number: JP-TAKEDA-2023TUS100780

PATIENT
  Age: 60 Year
  Sex: Female

DRUGS (1)
  1. BRIGATINIB [Suspect]
     Active Substance: BRIGATINIB
     Indication: Sarcomatoid carcinoma of the lung
     Dosage: 90 MILLIGRAM, QD
     Route: 065

REACTIONS (1)
  - Sarcomatoid carcinoma of the lung [Unknown]
